FAERS Safety Report 10463079 (Version 3)
Quarter: 2014Q4

REPORT INFORMATION
  Report Type: Spontaneous
  Country: US (occurrence: US)
  Receive Date: 20140919
  Receipt Date: 20141030
  Transmission Date: 20150528
  Serious: Yes (Hospitalization)
  Sender: FDA-Public Use
  Company Number: US-UNITED THERAPEUTICS-UNT-2014-007352

PATIENT
  Age: 82 Year
  Sex: Female
  Weight: 56.69 kg

DRUGS (1)
  1. REMODULIN [Suspect]
     Active Substance: TREPROSTINIL
     Indication: PULMONARY ARTERIAL HYPERTENSION
     Dosage: 0.045 ?G/KG, CONTINUING
     Route: 041
     Dates: start: 20080808

REACTIONS (3)
  - Vocal cord paralysis [Not Recovered/Not Resolved]
  - Aphonia [Recovering/Resolving]
  - Device dislocation [Recovered/Resolved]

NARRATIVE: CASE EVENT DATE: 20140728
